FAERS Safety Report 7366495-9 (Version None)
Quarter: 2011Q1

REPORT INFORMATION
  Report Type: 
  Country: None (occurrence: None)
  Receive Date: 20110322
  Receipt Date: 20101006
  Transmission Date: 20110831
  Serious: Yes (Hospitalization, Other)
  Sender: FDA-Public Use
  Company Number: US-BAYER-201020942NA

PATIENT
  Sex: Female
  Weight: 70.295 kg

DRUGS (6)
  1. YASMIN [Suspect]
     Dosage: UNK
     Dates: start: 20050601, end: 20060407
  2. ADVIL LIQUI-GELS [Concomitant]
  3. NSAID'S [Concomitant]
  4. CONTRACEPTIVES NOS [Concomitant]
  5. YASMIN [Suspect]
     Dosage: UNK
     Route: 048
     Dates: start: 20050601, end: 20060601
  6. ALEVE [Concomitant]

REACTIONS (3)
  - PAIN [None]
  - THROMBOSIS [None]
  - DEEP VEIN THROMBOSIS [None]
